FAERS Safety Report 7073402-5 (Version None)
Quarter: 2010Q4

REPORT INFORMATION
  Report Type: 
  Country: None (occurrence: None)
  Receive Date: 20101029
  Receipt Date: 20100610
  Transmission Date: 20110411
  Serious: No
  Sender: FDA-Public Use
  Company Number: A0864312A

PATIENT
  Sex: Female

DRUGS (9)
  1. ADVAIR DISKUS 100/50 [Suspect]
     Indication: CHRONIC OBSTRUCTIVE PULMONARY DISEASE
     Dosage: 1PUFF PER DAY
     Route: 055
     Dates: start: 20080101
  2. SPIRIVA [Concomitant]
  3. LESCOL [Concomitant]
  4. ATENOLOL [Concomitant]
  5. NORVASC [Concomitant]
  6. PROZAC [Concomitant]
  7. HYZAAR [Concomitant]
  8. TAMOXIFEN CITRATE [Concomitant]
  9. ZANTAC [Concomitant]

REACTIONS (1)
  - EYE IRRITATION [None]
